FAERS Safety Report 13606826 (Version 1)
Quarter: 2017Q2

REPORT INFORMATION
  Report Type: Spontaneous
  Country: US (occurrence: US)
  Receive Date: 20170602
  Receipt Date: 20170602
  Transmission Date: 20170830
  Serious: Yes (Other)
  Sender: FDA-Public Use
  Company Number: US-009507513-1705USA013757

PATIENT
  Age: 67 Year
  Sex: Male

DRUGS (1)
  1. DULERA [Suspect]
     Active Substance: FORMOTEROL FUMARATE DIHYDRATE\MOMETASONE FUROATE
     Dosage: 200/10 MICROGRAM PER ACTUATION
     Route: 055
     Dates: start: 201703, end: 2017

REACTIONS (6)
  - Pneumonia [Unknown]
  - Gastrointestinal disorder [Unknown]
  - Prostatic disorder [Unknown]
  - Nervous system disorder [Unknown]
  - Dysuria [Unknown]
  - Drug ineffective [Unknown]

NARRATIVE: CASE EVENT DATE: 2017
